FAERS Safety Report 10253107 (Version 1)
Quarter: 2014Q2

REPORT INFORMATION
  Report Type: Spontaneous
  Country: US (occurrence: US)
  Receive Date: 20140623
  Receipt Date: 20140623
  Transmission Date: 20141212
  Serious: Yes (Other)
  Sender: FDA-Public Use
  Company Number: US-GLAXOSMITHKLINE-A1077106A

PATIENT
  Age: 51 Year
  Sex: Female

DRUGS (10)
  1. LAMICTAL [Suspect]
     Indication: BIPOLAR DISORDER
     Route: 048
     Dates: start: 2007
  2. LAMOTRIGINE [Suspect]
     Indication: BIPOLAR DISORDER
     Route: 048
  3. LAMOTRIGINE [Suspect]
     Indication: BIPOLAR DISORDER
     Dosage: 25MG PER DAY
     Route: 048
     Dates: start: 201206, end: 201306
  4. GABAPENTIN [Concomitant]
  5. FLUTICASONE PROPIONATE [Concomitant]
  6. QVAR [Concomitant]
  7. OMEPRAZOLE [Concomitant]
  8. TESTOSTERONE [Concomitant]
  9. HYDROXYCHLOROQUINE [Concomitant]
  10. TRAMADOL [Concomitant]

REACTIONS (10)
  - Gastric bypass [Unknown]
  - Abdominal pain upper [Unknown]
  - Pruritus [Unknown]
  - Abdominal distension [Unknown]
  - Flatulence [Unknown]
  - Food allergy [Unknown]
  - Drug ineffective [Unknown]
  - Hallucination, auditory [Unknown]
  - Diarrhoea [Unknown]
  - Food allergy [Unknown]
